FAERS Safety Report 7366507-2 (Version None)
Quarter: 2011Q1

REPORT INFORMATION
  Report Type: 
  Country: None (occurrence: None)
  Receive Date: 20110317
  Receipt Date: 20110317
  Transmission Date: 20110831
  Serious: Yes (Hospitalization)
  Sender: FDA-Public Use
  Company Number: None

PATIENT
  Age: 37 Year
  Sex: Male
  Weight: 117 kg

DRUGS (1)
  1. DIPRIVAN [Suspect]
     Indication: SEDATION
     Dosage: IV DRIP (041)
     Route: 041
     Dates: start: 20110222

REACTIONS (1)
  - HYPERTHERMIA [None]
